FAERS Safety Report 8314532-7 (Version None)
Quarter: 2012Q2

REPORT INFORMATION
  Report Type: 
  Country: None (occurrence: None)
  Receive Date: 20120426
  Receipt Date: 20120419
  Transmission Date: 20120825
  Serious: Yes (Other)
  Sender: FDA-Public Use
  Company Number: US-ABBOTT-12P-163-0926220-00

PATIENT
  Sex: Female
  Weight: 63.106 kg

DRUGS (2)
  1. TRAMADOL HCL [Concomitant]
     Indication: PAIN
  2. HUMIRA [Suspect]
     Indication: PRODUCT USED FOR UNKNOWN INDICATION
     Route: 058
     Dates: start: 20111012, end: 20120408

REACTIONS (5)
  - ALLERGIC RESPIRATORY SYMPTOM [None]
  - DYSPNOEA [None]
  - SWELLING [None]
  - ANXIETY [None]
  - ANAPHYLACTIC REACTION [None]
